FAERS Safety Report 11672156 (Version 1)
Quarter: 2015Q4

REPORT INFORMATION
  Report Type: Spontaneous
  Country: US (occurrence: None)
  Receive Date: 20151027
  Receipt Date: 20151027
  Transmission Date: 20160304
  Serious: Yes (Other)
  Sender: FDA-Public Use
  Company Number: None

PATIENT
  Age: 57 Year
  Sex: Female

DRUGS (4)
  1. PERPHENAZINE. [Concomitant]
     Active Substance: PERPHENAZINE
  2. BUPROPRION SR [Concomitant]
     Active Substance: BUPROPION
  3. REXULTI [Suspect]
     Active Substance: BREXPIPRAZOLE
     Indication: SCHIZOAFFECTIVE DISORDER
     Dosage: 0.5-1 MG
     Route: 048
  4. LAMOTRIGINE. [Concomitant]
     Active Substance: LAMOTRIGINE

REACTIONS (4)
  - Photosensitivity reaction [None]
  - Temperature intolerance [None]
  - Skin burning sensation [None]
  - Agitation [None]

NARRATIVE: CASE EVENT DATE: 20150921
